FAERS Safety Report 15257699 (Version 1)
Quarter: 2018Q3

REPORT INFORMATION
  Report Type: Spontaneous
  Country: PR (occurrence: PR)
  Receive Date: 20180718
  Receipt Date: 20180718
  Transmission Date: 20181010
  Serious: Yes (Hospitalization)
  Sender: FDA-Public Use
  Company Number: None

PATIENT
  Age: 54 Year
  Sex: Male
  Weight: 90 kg

DRUGS (1)
  1. VICKS VAPORUB [Suspect]
     Active Substance: CAMPHOR (SYNTHETIC)\EUCALYPTUS OIL\MENTHOL
     Indication: PULMONARY CONGESTION
     Route: 061
     Dates: start: 20150713, end: 20150713

REACTIONS (10)
  - Dyspnoea [None]
  - Product packaging issue [None]
  - Oedema [None]
  - Product quality issue [None]
  - Application site pain [None]
  - Swelling [None]
  - Product expiration date issue [None]
  - Product label issue [None]
  - Hypersensitivity [None]
  - Product lot number issue [None]

NARRATIVE: CASE EVENT DATE: 20150713
